FAERS Safety Report 21641732 (Version 1)
Quarter: 2022Q4

REPORT INFORMATION
  Report Type: Report from Study
  Country: US (occurrence: US)
  Receive Date: 20221125
  Receipt Date: 20221125
  Transmission Date: 20230113
  Serious: No
  Sender: FDA-Public Use
  Company Number: US-ABBVIE-22K-163-4404255-00

PATIENT
  Age: 63 Year
  Sex: Female

DRUGS (5)
  1. RINVOQ [Suspect]
     Active Substance: UPADACITINIB
     Indication: Rheumatoid arthritis
     Route: 048
  2. RINVOQ [Suspect]
     Active Substance: UPADACITINIB
     Indication: Rheumatoid arthritis
     Route: 048
  3. RINVOQ [Suspect]
     Active Substance: UPADACITINIB
     Indication: Rheumatoid arthritis
     Route: 048
  4. MODERNA COVID-19 VACCINE [Concomitant]
     Active Substance: ELASOMERAN
     Indication: COVID-19 immunisation
     Dosage: TIME INTERVAL: 1 TOTAL
     Route: 030
     Dates: start: 20210410, end: 20210410
  5. MODERNA COVID-19 VACCINE [Concomitant]
     Active Substance: ELASOMERAN
     Indication: COVID-19 immunisation
     Dosage: TIME INTERVAL: 1 TOTAL
     Route: 030
     Dates: start: 20210510, end: 20210510

REACTIONS (14)
  - Memory impairment [Recovering/Resolving]
  - Fall [Recovered/Resolved]
  - Back pain [Unknown]
  - Ear injury [Unknown]
  - Arthralgia [Unknown]
  - Delirium [Unknown]
  - Fall [Recovered/Resolved]
  - COVID-19 [Unknown]
  - Pain [Unknown]
  - Middle insomnia [Unknown]
  - Insomnia [Unknown]
  - Headache [Recovered/Resolved]
  - Nausea [Unknown]
  - Gait disturbance [Unknown]

NARRATIVE: CASE EVENT DATE: 20220401
